FAERS Safety Report 7736195-1 (Version None)
Quarter: 2011Q3

REPORT INFORMATION
  Report Type: 
  Country: None (occurrence: None)
  Receive Date: 20110908
  Receipt Date: 20110831
  Transmission Date: 20111222
  Serious: Yes (Other)
  Sender: FDA-Public Use
  Company Number: US-AMGEN-USASP2011044711

PATIENT
  Age: 80 Year
  Sex: Female

DRUGS (5)
  1. NPLATE [Suspect]
     Indication: IDIOPATHIC THROMBOCYTOPENIC PURPURA
     Dosage: 300 MUG, UNK
     Dates: start: 20090414, end: 20110302
  2. CORTICOSTEROIDS [Concomitant]
  3. RECLAST [Concomitant]
  4. B12                                /00056201/ [Concomitant]
  5. EPOGEN [Concomitant]

REACTIONS (2)
  - THROMBOCYTOPENIA [None]
  - THERAPEUTIC RESPONSE DECREASED [None]
